FAERS Safety Report 9347021 (Version 1)
Quarter: 2013Q2

REPORT INFORMATION
  Report Type: Report from Study
  Country: GR (occurrence: GR)
  Receive Date: 20130613
  Receipt Date: 20130613
  Transmission Date: 20140414
  Serious: No
  Sender: FDA-Public Use
  Company Number: GR-MERCK-1306GRC005075

PATIENT
  Sex: 0

DRUGS (2)
  1. TEMOZOLOMIDE [Suspect]
     Indication: GLIOBLASTOMA MULTIFORME
     Dosage: 75MG/CM2
  2. CORTISONE [Concomitant]

REACTIONS (1)
  - Adverse event [Unknown]
